FAERS Safety Report 6274471-2 (Version None)
Quarter: 2009Q3

REPORT INFORMATION
  Report Type: 
  Country: None (occurrence: None)
  Receive Date: 20090720
  Receipt Date: 20090715
  Transmission Date: 20100115
  Serious: Yes (Death, Life-Threatening, Other)
  Sender: FDA-Public Use
  Company Number: PHHY2009JP24350

PATIENT
  Age: 54 Year
  Sex: Male
  Weight: 60 kg

DRUGS (7)
  1. NEORAL [Suspect]
     Indication: RENAL TRANSPLANT
     Dosage: 90 MG
     Route: 048
     Dates: end: 20081001
  2. NEORAL [Suspect]
     Dosage: UNK
     Route: 048
     Dates: start: 20081001
  3. STEROIDS NOS [Concomitant]
  4. CELLCEPT [Concomitant]
     Indication: RENAL TRANSPLANT
     Dosage: 1500 MG
     Route: 048
  5. CELLCEPT [Concomitant]
     Dosage: UNK
     Route: 048
  6. PREDNISOLONE [Concomitant]
     Indication: RENAL TRANSPLANT
     Dosage: 10 MG
     Route: 048
  7. PREDNISOLONE [Concomitant]
     Dosage: UNK
     Route: 048

REACTIONS (15)
  - APHASIA [None]
  - BRAIN NEOPLASM [None]
  - BRAIN OEDEMA [None]
  - CENTRAL NERVOUS SYSTEM LESION [None]
  - CYTOMEGALOVIRUS ANTIBODY POSITIVE [None]
  - CYTOMEGALOVIRUS INFECTION [None]
  - DISSEMINATED INTRAVASCULAR COAGULATION [None]
  - DIVERTICULITIS [None]
  - EPSTEIN-BARR VIRUS ANTIBODY POSITIVE [None]
  - EPSTEIN-BARR VIRUS ASSOCIATED LYMPHOPROLIFERATIVE DISORDER [None]
  - HEADACHE [None]
  - HEPATITIS B [None]
  - INTERLEUKIN-2 RECEPTOR INCREASED [None]
  - LARGE INTESTINE PERFORATION [None]
  - SPINAL DISORDER [None]
